FAERS Safety Report 8448666-3 (Version None)
Quarter: 2012Q2

REPORT INFORMATION
  Report Type: 
  Country: None (occurrence: None)
  Receive Date: 20120619
  Receipt Date: 20120613
  Transmission Date: 20120825
  Serious: Yes (Hospitalization, Disabling, Other)
  Sender: FDA-Public Use
  Company Number: US-MERCK-1110USA02437

PATIENT
  Age: 52 Year
  Sex: Female
  Weight: 62 kg

DRUGS (8)
  1. VITAMIN D (UNSPECIFIED) [Concomitant]
     Route: 065
     Dates: start: 20070101
  2. OMEGA-3 MARINE TRIGLYCERIDES [Concomitant]
     Route: 065
     Dates: start: 20000101
  3. FOSAMAX [Suspect]
     Indication: OSTEOPOROSIS
     Route: 048
     Dates: start: 20010101, end: 20080101
  4. FORTEO [Concomitant]
     Route: 065
  5. ESTROGENS (UNSPECIFIED) [Concomitant]
     Route: 065
     Dates: start: 20030101, end: 20080101
  6. FOSAMAX [Suspect]
     Route: 048
  7. FOSAMAX [Suspect]
     Indication: OSTEOPOROSIS PROPHYLAXIS
     Route: 048
  8. MULTI-VITAMINS [Concomitant]
     Route: 065
     Dates: start: 19800101

REACTIONS (32)
  - BASAL CELL CARCINOMA [None]
  - ADVERSE EVENT [None]
  - ROAD TRAFFIC ACCIDENT [None]
  - HYPERTENSION [None]
  - HYPERLIPIDAEMIA [None]
  - STRESS FRACTURE [None]
  - PLANTAR FASCIITIS [None]
  - LOCALISED INFECTION [None]
  - BLOOD PRESSURE INCREASED [None]
  - CONTUSION [None]
  - HAND FRACTURE [None]
  - PATELLOFEMORAL PAIN SYNDROME [None]
  - RECTOCELE [None]
  - ENDOMETRIAL CANCER [None]
  - MUSCULAR WEAKNESS [None]
  - FEMUR FRACTURE [None]
  - HAEMATURIA [None]
  - UTERINE PROLAPSE [None]
  - OSTEOPENIA [None]
  - CYSTOCELE [None]
  - BREAST HYPERPLASIA [None]
  - HIATUS HERNIA [None]
  - FALL [None]
  - ABDOMINAL DISCOMFORT [None]
  - CERVICITIS [None]
  - UTERINE LEIOMYOMA [None]
  - NECK PAIN [None]
  - LACERATION [None]
  - VITAMIN D DEFICIENCY [None]
  - FOOT FRACTURE [None]
  - SINUSITIS [None]
  - CHRONIC OBSTRUCTIVE PULMONARY DISEASE [None]
